FAERS Safety Report 9675873 (Version 2)
Quarter: 2013Q4

REPORT INFORMATION
  Report Type: Spontaneous
  Country: FR (occurrence: FR)
  Receive Date: 20131107
  Receipt Date: 20131204
  Transmission Date: 20140711
  Serious: Yes (Hospitalization)
  Sender: FDA-Public Use
  Company Number: FR-GLAXOSMITHKLINE-B0938946A

PATIENT
  Age: 80 Year
  Sex: Male

DRUGS (15)
  1. AUGMENTIN [Suspect]
     Indication: EAR PAIN
     Dosage: 1G THREE TIMES PER DAY
     Route: 065
     Dates: start: 20130417, end: 20130527
  2. TAZOCILLINE [Suspect]
     Indication: EAR INFECTION
     Dosage: 4G THREE TIMES PER DAY
     Route: 042
     Dates: start: 20130515, end: 20130619
  3. CIFLOX [Suspect]
     Indication: EAR INFECTION
     Dosage: 500MG THREE TIMES PER DAY
     Route: 048
     Dates: start: 20130515, end: 20130524
  4. INEXIUM [Suspect]
     Indication: GASTROOESOPHAGEAL REFLUX DISEASE
     Dosage: 1UNIT PER DAY
     Route: 048
     Dates: start: 20130506, end: 20130524
  5. KARDEGIC [Suspect]
     Indication: MYOCARDIAL INFARCTION
     Dosage: 1SAC IN THE MORNING
     Route: 048
  6. NEBIVOLOL [Suspect]
     Indication: HYPERTENSION
     Dosage: .5TAB IN THE MORNING
     Route: 048
  7. TAHOR [Suspect]
     Indication: PRODUCT USED FOR UNKNOWN INDICATION
     Dosage: 1TAB AT NIGHT
     Route: 048
  8. OMACOR [Suspect]
     Indication: MYOCARDIAL INFARCTION
     Dosage: 1CAP PER DAY
     Route: 048
  9. OFLOCET [Suspect]
     Indication: PRODUCT USED FOR UNKNOWN INDICATION
     Route: 001
     Dates: start: 20130524, end: 20130612
  10. PANTOPRAZOLE [Suspect]
     Indication: PRODUCT USED FOR UNKNOWN INDICATION
     Route: 065
  11. INIPOMP [Concomitant]
     Dosage: 20MG AT NIGHT
  12. DIFFU K [Concomitant]
  13. TRAMADOL [Concomitant]
  14. POLYDEXA [Concomitant]
     Indication: DEAFNESS
  15. SOLUPRED [Concomitant]
     Indication: EAR PAIN
     Dates: end: 20130421

REACTIONS (6)
  - Drug reaction with eosinophilia and systemic symptoms [Unknown]
  - Renal failure acute [Unknown]
  - Hepatocellular injury [Unknown]
  - Pyrexia [Unknown]
  - Face oedema [Unknown]
  - Lymphadenopathy [Unknown]
